FAERS Safety Report 6768449-X (Version None)
Quarter: 2010Q2

REPORT INFORMATION
  Report Type: 
  Country: None (occurrence: None)
  Receive Date: 20100614
  Receipt Date: 20100428
  Transmission Date: 20101027
  Serious: Yes (Other)
  Sender: FDA-Public Use
  Company Number: US-BAYER-201025188GPV

PATIENT
  Age: 57 Year
  Sex: Male

DRUGS (4)
  1. SOTALOL [Suspect]
     Indication: ATRIAL FIBRILLATION
     Route: 048
  2. SOTALOL [Suspect]
     Dosage: RE-INTRODUCTION TWO WEEKS AFTER DISCONTINUATION
  3. CALCIUM CHANNEL BLOCKERS [Concomitant]
     Indication: ATRIAL FIBRILLATION
  4. BETA-BLOCKERS [Concomitant]
     Indication: ATRIAL FIBRILLATION

REACTIONS (3)
  - BALANCE DISORDER [None]
  - DIZZINESS [None]
  - VESTIBULAR DISORDER [None]
